FAERS Safety Report 4973100-5 (Version None)
Quarter: 2006Q2

REPORT INFORMATION
  Report Type: 
  Country: None (occurrence: None)
  Receive Date: 20060407
  Receipt Date: 20060330
  Transmission Date: 20061013
  Serious: Yes (Hospitalization)
  Sender: FDA-Public Use
  Company Number: ITWYE961708SEP05

PATIENT
  Age: 21 Year
  Sex: Female

DRUGS (1)
  1. LOETTE [Suspect]
     Indication: ORAL CONTRACEPTION
     Dosage: 1 DOSE 1X PER DAY, ORAL
     Route: 048
     Dates: start: 20041201, end: 20050902

REACTIONS (2)
  - PULMONARY EMBOLISM [None]
  - PULMONARY INFARCTION [None]
